FAERS Safety Report 7391303-X (Version None)
Quarter: 2011Q2

REPORT INFORMATION
  Report Type: 
  Country: None (occurrence: None)
  Receive Date: 20110404
  Receipt Date: 20110317
  Transmission Date: 20111010
  Serious: No
  Sender: FDA-Public Use
  Company Number: US-ROXANE LABORATORIES, INC.-2011-RO-00409RO

PATIENT
  Sex: Female
  Weight: 50 kg

DRUGS (8)
  1. PREDNISONE [Suspect]
     Indication: INFLAMMATION
     Dates: start: 20110201
  2. DEXILANT [Suspect]
     Dosage: 60 MG
     Route: 048
     Dates: start: 20110214
  3. DEXILANT [Suspect]
     Indication: GASTROINTESTINAL HAEMORRHAGE
     Dosage: 60 MG
     Route: 048
     Dates: start: 20110201
  4. XANAX [Concomitant]
     Indication: ANXIETY
  5. DOXYCYCLINE [Suspect]
     Indication: LYME DISEASE
     Dates: start: 20110201
  6. PREDNISONE [Suspect]
     Dates: start: 20110214
  7. VICODIN [Concomitant]
     Indication: PAIN
  8. DOXYCYCLINE [Suspect]
     Dates: start: 20110214

REACTIONS (26)
  - TONGUE DISCOLOURATION [None]
  - HYPERTENSION [None]
  - RESPIRATORY TRACT CONGESTION [None]
  - CHEST PAIN [None]
  - CHILLS [None]
  - UPPER RESPIRATORY TRACT INFECTION [None]
  - FLATULENCE [None]
  - PYREXIA [None]
  - VERTIGO [None]
  - HEADACHE [None]
  - EPISTAXIS [None]
  - HOT FLUSH [None]
  - ABDOMINAL PAIN [None]
  - INCREASED APPETITE [None]
  - DYSGEUSIA [None]
  - ABDOMINAL DISTENSION [None]
  - HEART RATE IRREGULAR [None]
  - GLOSSODYNIA [None]
  - OCULAR HYPERAEMIA [None]
  - EAR PAIN [None]
  - SWELLING [None]
  - NAUSEA [None]
  - DIZZINESS [None]
  - VOMITING [None]
  - EYE IRRITATION [None]
  - FREQUENT BOWEL MOVEMENTS [None]
